FAERS Safety Report 6398527-9 (Version None)
Quarter: 2009Q4

REPORT INFORMATION
  Report Type: 
  Country: None (occurrence: None)
  Receive Date: 20091007
  Receipt Date: 20090930
  Transmission Date: 20100525
  Serious: Yes (Congenital Anomaly)
  Sender: FDA-Public Use
  Company Number: 2009SP023614

PATIENT

DRUGS (1)
  1. NUVARING [Suspect]
     Indication: CONTRACEPTION
     Dosage: TRPL
     Route: 064

REACTIONS (7)
  - ABORTION INDUCED [None]
  - ARNOLD-CHIARI MALFORMATION [None]
  - CEREBRAL VENTRICLE DILATATION [None]
  - MATERNAL DRUGS AFFECTING FOETUS [None]
  - NEURAL TUBE DEFECT [None]
  - SPINA BIFIDA [None]
  - TALIPES [None]
